FAERS Safety Report 4960040-0 (Version None)
Quarter: 2006Q1

REPORT INFORMATION
  Report Type: 
  Country: None (occurrence: None)
  Receive Date: 20060331
  Receipt Date: 20051215
  Transmission Date: 20060701
  Serious: Yes (Hospitalization)
  Sender: FDA-Public Use
  Company Number: US-MERCK-0512USA02526

PATIENT
  Age: 47 Year
  Sex: Male
  Weight: 113 kg

DRUGS (7)
  1. VIOXX [Suspect]
     Indication: BACK PAIN
     Route: 048
     Dates: start: 20020721, end: 20021116
  2. CELEBREX [Concomitant]
     Indication: ARTHRITIS
     Route: 065
     Dates: start: 20020709, end: 20021116
  3. VICODIN [Concomitant]
     Indication: BACK PAIN
     Route: 065
     Dates: start: 20021010, end: 20021116
  4. FLEXERIL [Concomitant]
     Indication: PAIN
     Route: 065
     Dates: start: 20021021, end: 20021116
  5. ULTRAM [Concomitant]
     Indication: BACK PAIN
     Route: 065
     Dates: start: 20020722, end: 20021116
  6. LIPITOR [Concomitant]
     Indication: BLOOD CHOLESTEROL INCREASED
     Route: 065
     Dates: start: 20021010
  7. DIOVAN [Concomitant]
     Indication: HYPERTENSION
     Route: 065
     Dates: start: 20021010

REACTIONS (4)
  - MYOCARDIAL INFARCTION [None]
  - MYOCARDIAL ISCHAEMIA [None]
  - OVERDOSE [None]
  - SKIN LACERATION [None]
